FAERS Safety Report 8509557-2 (Version None)
Quarter: 2012Q3

REPORT INFORMATION
  Report Type: 
  Country: None (occurrence: None)
  Receive Date: 20120713
  Receipt Date: 20120703
  Transmission Date: 20120928
  Serious: Yes (Life-Threatening, Hospitalization)
  Sender: FDA-Public Use
  Company Number: FR-BRISTOL-MYERS SQUIBB COMPANY-16746737

PATIENT
  Age: 56 Year
  Sex: Female

DRUGS (6)
  1. DURAGESIC-100 [Suspect]
     Indication: NEUROBLASTOMA
     Dosage: 1DF=25 TO 50 MG
     Dates: end: 20111006
  2. PROZAC [Concomitant]
  3. CISPLATIN [Suspect]
     Indication: NEUROBLASTOMA
     Dosage: 2ND COURSE ON 20-SEP-2011
     Dates: start: 20110831
  4. ALPRAZOLAM [Suspect]
     Dates: end: 20111006
  5. MORPHINE SULFATE [Suspect]
     Indication: NEUROBLASTOMA
     Dates: end: 20111006
  6. ACETAMINOPHEN [Suspect]
     Indication: PAIN

REACTIONS (4)
  - COMA [None]
  - SEPTIC SHOCK [None]
  - RENAL FAILURE ACUTE [None]
  - CYTOLYTIC HEPATITIS [None]
